FAERS Safety Report 8217103 (Version 2)
Quarter: 2013Q2

REPORT INFORMATION
  Report Type: Spontaneous
  Country: US (occurrence: US)
  Receive Date: 20111101
  Receipt Date: 20130617
  Transmission Date: 20140414
  Serious: No
  Sender: FDA-Public Use
  Company Number: US-BAYER-2011-094786

PATIENT
  Sex: Female

DRUGS (1)
  1. CLIMARA PRO [Suspect]

REACTIONS (3)
  - Acne [None]
  - Application site erythema [None]
  - Product adhesion issue [None]
